FAERS Safety Report 11264968 (Version 1)
Quarter: 2015Q3

REPORT INFORMATION
  Report Type: Spontaneous
  Country: US (occurrence: None)
  Receive Date: 20150710
  Receipt Date: 20150710
  Transmission Date: 20151125
  Serious: Yes (Other)
  Sender: FDA-Public Use
  Company Number: None

PATIENT
  Age: 43 Year
  Sex: Female
  Weight: 97.52 kg

DRUGS (4)
  1. MILK KEFIR GRAINS [Concomitant]
  2. IBUPROFEN. [Concomitant]
     Active Substance: IBUPROFEN
  3. MIRENA [Suspect]
     Active Substance: LEVONORGESTREL
     Indication: CONTRACEPTION
     Dosage: IUD IMPLANTED PLACED IN UTERUS
  4. VITAMFUSION WOMEN^S ADULT DAILY VITAMINS [Concomitant]

REACTIONS (20)
  - Weight increased [None]
  - Palpitations [None]
  - Eye swelling [None]
  - Hypoaesthesia [None]
  - Fatigue [None]
  - Swelling face [None]
  - Anxiety [None]
  - Myalgia [None]
  - Acne cystic [None]
  - Feeling abnormal [None]
  - Eye disorder [None]
  - Paraesthesia [None]
  - Irritability [None]
  - Abdominal distension [None]
  - Tooth disorder [None]
  - Arthralgia [None]
  - Impaired work ability [None]
  - Alopecia [None]
  - Libido decreased [None]
  - Breast tenderness [None]

NARRATIVE: CASE EVENT DATE: 20150707
